FAERS Safety Report 17794533 (Version 4)
Quarter: 2021Q1

REPORT INFORMATION
  Report Type: Report from Study
  Country: None (occurrence: US)
  Receive Date: 20200516
  Receipt Date: 20210224
  Transmission Date: 20210419
  Serious: Yes (Hospitalization, Other)
  Sender: FDA-Public Use
  Company Number: US-ABBVIE-20K-163-3402567-00

PATIENT
  Sex: Male
  Weight: 81.72 kg

DRUGS (4)
  1. VENCLEXTA [Suspect]
     Active Substance: VENETOCLAX
     Route: 048
     Dates: start: 2020
  2. VENCLEXTA [Suspect]
     Active Substance: VENETOCLAX
     Route: 048
     Dates: start: 20180828, end: 202003
  3. VENCLEXTA [Suspect]
     Active Substance: VENETOCLAX
     Indication: CHRONIC LYMPHOCYTIC LEUKAEMIA
     Route: 048
     Dates: start: 20180828, end: 202003
  4. RITUXAN [Concomitant]
     Active Substance: RITUXIMAB
     Indication: PRODUCT USED FOR UNKNOWN INDICATION

REACTIONS (21)
  - Pneumonia [Recovered/Resolved]
  - Hypertension [Recovered/Resolved]
  - Hypertension [Recovering/Resolving]
  - Hyperhidrosis [Unknown]
  - Hypophagia [Unknown]
  - Cardiac disorder [Unknown]
  - Asthenia [Recovering/Resolving]
  - Body temperature increased [Unknown]
  - Confusional state [Recovered/Resolved]
  - COVID-19 [Recovered/Resolved]
  - Vertigo [Recovered/Resolved]
  - Feeling abnormal [Recovered/Resolved]
  - Haemorrhoids [Not Recovered/Not Resolved]
  - Sepsis [Unknown]
  - Weight decreased [Recovering/Resolving]
  - Incoherent [Recovered/Resolved]
  - Asthenia [Recovered/Resolved]
  - Hypotension [Recovered/Resolved]
  - Anxiety [Not Recovered/Not Resolved]
  - Disturbance in attention [Not Recovered/Not Resolved]
  - Grief reaction [Not Recovered/Not Resolved]

NARRATIVE: CASE EVENT DATE: 2020
